FAERS Safety Report 25276993 (Version 1)
Quarter: 2025Q2

REPORT INFORMATION
  Report Type: Report from Study
  Country: KR (occurrence: KR)
  Receive Date: 20250507
  Receipt Date: 20250507
  Transmission Date: 20250717
  Serious: Yes (Other)
  Sender: Haleon PLC
  Company Number: KR-HALEON-2240604

PATIENT
  Age: 44 Year
  Sex: Female

DRUGS (1)
  1. IBUPROFEN [Suspect]
     Active Substance: IBUPROFEN
     Indication: Product used for unknown indication

REACTIONS (17)
  - Anaphylactic reaction [Unknown]
  - Hypoxia [Unknown]
  - Throat tightness [Unknown]
  - Cough [Unknown]
  - Wheezing [Unknown]
  - Dysphonia [Unknown]
  - Nausea [Unknown]
  - Vomiting [Unknown]
  - Abdominal pain [Unknown]
  - Hypotension [Unknown]
  - Chest pain [Unknown]
  - Hypersensitivity [Unknown]
  - Angioedema [Unknown]
  - Urticaria [Unknown]
  - Pruritus [Unknown]
  - Flushing [Unknown]
  - Dyspnoea [Unknown]
